FAERS Safety Report 16945825 (Version 2)
Quarter: 2020Q3

REPORT INFORMATION
  Report Type: Report from Study
  Country: US (occurrence: US)
  Receive Date: 20191022
  Receipt Date: 20200806
  Transmission Date: 20201102
  Serious: No
  Sender: FDA-Public Use
  Company Number: US-009507513-1910USA013161

PATIENT
  Sex: Female

DRUGS (4)
  1. PEMBROLIZUMAB. [Suspect]
     Active Substance: PEMBROLIZUMAB
     Dosage: UNK
     Dates: start: 201909
  2. ANTINEOPLASTIC (UNSPECIFIED) [Suspect]
     Active Substance: UNSPECIFIED INGREDIENT
  3. ALIMTA [Suspect]
     Active Substance: PEMETREXED DISODIUM
     Dosage: UNK
  4. CARBOPLATIN. [Suspect]
     Active Substance: CARBOPLATIN
     Dosage: UNK

REACTIONS (3)
  - Mouth ulceration [Unknown]
  - Fatigue [Unknown]
  - Cognitive disorder [Unknown]
